FAERS Safety Report 20490346 (Version 1)
Quarter: 2022Q1

REPORT INFORMATION
  Report Type: Spontaneous
  Country: US (occurrence: US)
  Receive Date: 20220218
  Receipt Date: 20220218
  Transmission Date: 20220423
  Serious: Yes (Hospitalization)
  Sender: FDA-Public Use
  Company Number: None

PATIENT
  Age: 78 Year
  Sex: Male

DRUGS (2)
  1. FLUOROURACIL [Suspect]
     Active Substance: FLUOROURACIL
     Indication: Ocular surface squamous neoplasia
     Dosage: UNK UNK, DROPS, CYCLE, FOUR TIMES IN A DAY FOR 1 WEEK FOLLOWED BY HOLIDAY OF A WEEK
     Route: 061
  2. FLUOROURACIL [Suspect]
     Active Substance: FLUOROURACIL
     Dosage: UNK UNK, DROPS, CYCLE, AN ADDITIONAL BIWEEKLY CYCLE OF FLUOROURACIL
     Route: 061

REACTIONS (6)
  - Intentional product misuse [Recovering/Resolving]
  - Corneal toxicity [Recovering/Resolving]
  - Conjunctivitis [Recovering/Resolving]
  - Ulcerative keratitis [Recovering/Resolving]
  - Corneal perforation [Recovering/Resolving]
  - Off label use [Unknown]
